FAERS Safety Report 5292655-7 (Version None)
Quarter: 2007Q2

REPORT INFORMATION
  Report Type: 
  Country: None (occurrence: None)
  Receive Date: 20070404
  Receipt Date: 20070319
  Transmission Date: 20071010
  Serious: Yes (Death)
  Sender: FDA-Public Use
  Company Number: 8022911

PATIENT
  Sex: Male

DRUGS (1)
  1. KEPPRA [Suspect]

REACTIONS (3)
  - AGRANULOCYTOSIS [None]
  - APLASTIC ANAEMIA [None]
  - PANCYTOPENIA [None]
